FAERS Safety Report 5565165-7 (Version None)
Quarter: 2007Q4

REPORT INFORMATION
  Report Type: 
  Country: None (occurrence: None)
  Receive Date: 20071213
  Receipt Date: 20071207
  Transmission Date: 20080405
  Serious: Yes (Other)
  Sender: FDA-Public Use
  Company Number: 2007337335

PATIENT
  Sex: Male

DRUGS (1)
  1. VISINE EYE DROPS [Suspect]
     Indication: DRY EYE
     Dosage: 1 DROP, 1 TIME, OPHTHALMIC
     Route: 047
     Dates: start: 20071205, end: 20071205

REACTIONS (3)
  - EYE BURNS [None]
  - EYE IRRITATION [None]
  - OCULAR HYPERAEMIA [None]
